FAERS Safety Report 4582111-3 (Version None)
Quarter: 2005Q1

REPORT INFORMATION
  Report Type: 
  Country: None (occurrence: None)
  Receive Date: 20050119
  Receipt Date: 20031218
  Transmission Date: 20050727
  Serious: Yes (Hospitalization)
  Sender: FDA-Public Use
  Company Number: A03200303015

PATIENT
  Age: 60 Year
  Sex: Female
  Weight: 68.0396 kg

DRUGS (5)
  1. PLAVIX [Suspect]
     Indication: STENT PLACEMENT
     Dosage: 75 MG QD - ORAL
     Route: 048
     Dates: start: 20031101, end: 20031201
  2. ANTIHYPERTENSIVE [Concomitant]
  3. ACETYLSALICYLIC ACID SRT [Concomitant]
  4. ACETAMINOPHEN [Concomitant]
  5. FEXOFENADINE HYDROCHLORIDE [Concomitant]

REACTIONS (4)
  - CONTUSION [None]
  - FAECES DISCOLOURED [None]
  - FATIGUE [None]
  - GASTRIC HAEMORRHAGE [None]
